FAERS Safety Report 8927608 (Version 2)
Quarter: 2013Q1

REPORT INFORMATION
  Report Type: Spontaneous
  Country: BR (occurrence: BR)
  Receive Date: 20121127
  Receipt Date: 20130201
  Transmission Date: 20140127
  Serious: Yes (Death, Hospitalization, Other)
  Sender: FDA-Public Use
  Company Number: PHHY2012BR108287

PATIENT
  Sex: Female

DRUGS (2)
  1. DIOVAN TRIPLE [Suspect]
     Indication: HYPERTENSION
     Dosage: 1 DF, DAILY (160 MG VALS/12.5 MG AMLO/5 MG HYDR)
     Route: 048
  2. TIMOPTOL [Concomitant]
     Indication: GLAUCOMA
     Dosage: 1 DRP, QD (1 DROP IN EACH EYE)

REACTIONS (6)
  - Cardiac infection [Fatal]
  - Urinary tract infection [Fatal]
  - Pyrexia [Fatal]
  - Infection [Fatal]
  - Dementia Alzheimer^s type [Fatal]
  - Peripheral arterial occlusive disease [Recovered/Resolved]
